FAERS Safety Report 7689542-3 (Version None)
Quarter: 2011Q3

REPORT INFORMATION
  Report Type: 
  Country: None (occurrence: None)
  Receive Date: 20110817
  Receipt Date: 20110811
  Transmission Date: 20111222
  Serious: Yes (Hospitalization, Other)
  Sender: FDA-Public Use
  Company Number: AU-ABBOTT-11P-008-0845664-00

PATIENT
  Sex: Female
  Weight: 88.4 kg

DRUGS (8)
  1. PANADOL OSTEO TABLETS [Concomitant]
     Dosage: UP TO 4 A DAY
  2. OLMESARTAN MEDOXOMIL [Concomitant]
     Indication: PRODUCT USED FOR UNKNOWN INDICATION
  3. LIPIDIL [Suspect]
     Indication: PRODUCT USED FOR UNKNOWN INDICATION
  4. PANADOL OSTEO TABLETS [Concomitant]
     Indication: PRODUCT USED FOR UNKNOWN INDICATION
     Dosage: 1 OR 2 TID, AS NEEDED
  5. VOLTAREN [Concomitant]
     Indication: PRODUCT USED FOR UNKNOWN INDICATION
     Dosage: 2
     Dates: start: 20110728, end: 20110728
  6. CHOLECALCIFEROL GEL CAPSULE [Concomitant]
     Indication: PRODUCT USED FOR UNKNOWN INDICATION
  7. HERBAL SUPPLEMENT [Concomitant]
     Indication: ARTHRITIS
  8. ALLOPURINOL [Concomitant]
     Indication: PRODUCT USED FOR UNKNOWN INDICATION
     Dosage: 1 DAILY MDU

REACTIONS (2)
  - RENAL FAILURE ACUTE [None]
  - URINARY TRACT INFECTION [None]
